FAERS Safety Report 5377164-9 (Version None)
Quarter: 2007Q3

REPORT INFORMATION
  Report Type: 
  Country: None (occurrence: None)
  Receive Date: 20070703
  Receipt Date: 20070622
  Transmission Date: 20080115
  Serious: Yes (Other)
  Sender: FDA-Public Use
  Company Number: US-ELI_LILLY_AND_COMPANY-USA050290513

PATIENT
  Age: 52 Year
  Sex: Female

DRUGS (4)
  1. HUMALOG [Suspect]
     Indication: TYPE 1 DIABETES MELLITUS
     Dosage: UNK, UNKNOWN
  2. HUMULIN R [Suspect]
     Dosage: UNK, UNKNOWN
  3. LANTUS [Concomitant]
     Dosage: UNK, UNKNOWN
  4. PROCRIT [Concomitant]
     Dosage: UNK, UNKNOWN

REACTIONS (5)
  - BLOOD GLUCOSE INCREASED [None]
  - DENTAL OPERATION [None]
  - LIMB INJURY [None]
  - PAIN [None]
  - WALDENSTROM'S MACROGLOBULINAEMIA [None]
